FAERS Safety Report 4737703-5 (Version None)
Quarter: 2005Q3

REPORT INFORMATION
  Report Type: 
  Country: None (occurrence: None)
  Receive Date: 20050809
  Receipt Date: 20050617
  Transmission Date: 20060218
  Serious: No
  Sender: FDA-Public Use
  Company Number: US-GLAXOSMITHKLINE-A0563128A

PATIENT
  Age: 78 Year
  Sex: Female

DRUGS (4)
  1. COMMIT [Suspect]
     Dates: start: 20050611
  2. ATROVENT [Concomitant]
     Indication: EMPHYSEMA
  3. ADVAIR DISKUS 100/50 [Concomitant]
     Indication: EMPHYSEMA
  4. PAXIL [Concomitant]
     Indication: DEPRESSION

REACTIONS (2)
  - CONSTIPATION [None]
  - FAECES DISCOLOURED [None]
